FAERS Safety Report 12257625 (Version 1)
Quarter: 2016Q2

REPORT INFORMATION
  Report Type: Other
  Country: FR (occurrence: FR)
  Receive Date: 20160412
  Receipt Date: 20160412
  Transmission Date: 20160815
  Serious: Yes (Hospitalization, Other)
  Sender: FDA-Public Use
  Company Number: FR-TAKEDA-2016TEU002400

PATIENT
  Age: 53 Year
  Sex: Female

DRUGS (2)
  1. FLOSEAL [Concomitant]
     Active Substance: THROMBIN
     Dosage: UNK
  2. TACHOSIL [Suspect]
     Active Substance: FIBRINOGEN HUMAN\THROMBIN HUMAN
     Indication: NEUROSURGERY
     Dosage: UNK
     Route: 065
     Dates: start: 20120605, end: 20120605

REACTIONS (2)
  - Meningitis aseptic [Recovered/Resolved with Sequelae]
  - Hydrocephalus [Recovered/Resolved]

NARRATIVE: CASE EVENT DATE: 20120609
